FAERS Safety Report 19859632 (Version 1)
Quarter: 2021Q3

REPORT INFORMATION
  Report Type: Spontaneous
  Country: US (occurrence: US)
  Receive Date: 20210919
  Receipt Date: 20210919
  Transmission Date: 20211014
  Serious: Yes (Death)
  Sender: FDA-Public Use
  Company Number: None

PATIENT
  Age: 68 Year
  Sex: Female

DRUGS (1)
  1. CAPECITABINE 500MG [Suspect]
     Active Substance: CAPECITABINE
     Indication: PANCREATIC CARCINOMA
     Dosage: 4 TABLETS :BID X 14 DAY PO?
     Route: 048
     Dates: start: 20210826, end: 20210913

REACTIONS (1)
  - Death [None]

NARRATIVE: CASE EVENT DATE: 20210913
